FAERS Safety Report 13680153 (Version 2)
Quarter: 2018Q1

REPORT INFORMATION
  Report Type: Spontaneous
  Country: CA (occurrence: CA)
  Receive Date: 20170622
  Receipt Date: 20180321
  Transmission Date: 20180508
  Serious: Yes (Death, Other)
  Sender: FDA-Public Use
  Company Number: CA-ACTELION-A-NJ2017-155561

PATIENT
  Age: 70 Year
  Sex: Female

DRUGS (3)
  1. WARFARIN [Concomitant]
     Active Substance: WARFARIN
     Indication: ATRIAL FLUTTER
  2. OXYGEN. [Concomitant]
     Active Substance: OXYGEN
  3. TRACLEER [Suspect]
     Active Substance: BOSENTAN
     Indication: PULMONARY ARTERIAL HYPERTENSION
     Dosage: 125 MG, BID
     Route: 048

REACTIONS (8)
  - Right ventricular dysfunction [Unknown]
  - Ejection fraction decreased [Unknown]
  - Pleural effusion [Unknown]
  - Hyperhidrosis [Unknown]
  - Diastolic dysfunction [Unknown]
  - Pericardial effusion [Unknown]
  - Death [Fatal]
  - Mitral valve incompetence [Unknown]

NARRATIVE: CASE EVENT DATE: 20170516
